FAERS Safety Report 9513268 (Version 1)
Quarter: 2013Q3

REPORT INFORMATION
  Report Type: Spontaneous
  Country: GB (occurrence: GB)
  Receive Date: 20130910
  Receipt Date: 20130910
  Transmission Date: 20140515
  Serious: Yes (Other)
  Sender: FDA-Public Use
  Company Number: GB-TEVA-430993ISR

PATIENT
  Age: 71 Year
  Sex: Male

DRUGS (6)
  1. ETOPOSIDE [Suspect]
     Indication: FOLLICLE CENTRE LYMPHOMA, FOLLICULAR GRADE I, II, III
     Dosage: 3 COURSES OF R-ESHAP CHEMOTHERAPY
     Route: 065
     Dates: start: 200810, end: 200812
  2. CISPLATIN [Suspect]
     Indication: FOLLICLE CENTRE LYMPHOMA, FOLLICULAR GRADE I, II, III
     Dosage: 3 COURSES OF R-ESHAP CHEMOTHERAPY
     Route: 065
     Dates: start: 200810, end: 200812
  3. RITUXIMAB [Suspect]
     Indication: FOLLICLE CENTRE LYMPHOMA, FOLLICULAR GRADE I, II, III
     Dosage: 3 COURSES OF R-ESHAP CHEMOTHERAPY
     Route: 065
     Dates: start: 200810, end: 200812
  4. METHYLPREDNISOLONE [Suspect]
     Indication: FOLLICLE CENTRE LYMPHOMA, FOLLICULAR GRADE I, II, III
     Dosage: 3 COURSES OF R-ESHAP CHEMOTHERAPY
     Route: 065
     Dates: start: 200810, end: 200812
  5. CYTARABINE [Suspect]
     Indication: FOLLICLE CENTRE LYMPHOMA, FOLLICULAR GRADE I, II, III
     Dosage: 3 COURSES OF R-ESHAP CHEMOTHERAPY
     Route: 065
     Dates: start: 200810, end: 200812
  6. TENOFOVIR [Suspect]
     Indication: HEPATITIS B
     Dosage: 245 MILLIGRAM DAILY;
     Route: 065

REACTIONS (2)
  - Hepatitis B [Recovering/Resolving]
  - Therapeutic response decreased [Not Recovered/Not Resolved]
